FAERS Safety Report 9626343 (Version 1)
Quarter: 2013Q4

REPORT INFORMATION
  Report Type: Spontaneous
  Country: CA (occurrence: CA)
  Receive Date: 20131016
  Receipt Date: 20131016
  Transmission Date: 20140711
  Serious: Yes (Hospitalization, Other)
  Sender: FDA-Public Use
  Company Number: CA-BAXTER-2013BAX039450

PATIENT
  Age: 55 Year
  Sex: Female

DRUGS (2)
  1. DIANEAL PD4 SOLUTION WITH 1.5% DEXTROSE AND 2.5 MEQ/L CALCIUM [Suspect]
     Indication: SINGLE FUNCTIONAL KIDNEY
     Route: 033
  2. EXTRANEAL [Suspect]
     Indication: SINGLE FUNCTIONAL KIDNEY
     Route: 033

REACTIONS (2)
  - Gangrene [Recovered/Resolved with Sequelae]
  - Diabetic vascular disorder [Unknown]
